FAERS Safety Report 9534947 (Version 1)
Quarter: 2013Q2

REPORT INFORMATION
  Report Type: Spontaneous
  Country: US (occurrence: None)
  Receive Date: 20130403
  Receipt Date: 20130403
  Transmission Date: 20140414
  Serious: Yes (Other)
  Sender: FDA-Public Use
  Company Number: US-2012-10706

PATIENT
  Age: 39 Year
  Sex: Female

DRUGS (3)
  1. BUSULFEX [Suspect]
     Indication: THERAPEUTIC PROCEDURE
     Route: 042
  2. FLUDARABINE [Suspect]
     Indication: THERAPEUTIC PROCEDURE
     Route: 051
  3. ATG [Suspect]
     Indication: THERAPEUTIC PROCEDURE
     Route: 051

REACTIONS (2)
  - Cytomegalovirus infection [None]
  - Transplant failure [None]
